FAERS Safety Report 16633708 (Version 1)
Quarter: 2019Q3

REPORT INFORMATION
  Report Type: Spontaneous
  Country: US (occurrence: US)
  Receive Date: 20190725
  Receipt Date: 20190725
  Transmission Date: 20191004
  Serious: No
  Sender: FDA-Public Use
  Company Number: US-DERMIRA, INC.-US-2019DER000322

PATIENT
  Age: 13 Year
  Sex: Female
  Weight: 61.22 kg

DRUGS (3)
  1. CLINDAMYCIN PHOSPHATE. [Concomitant]
     Active Substance: CLINDAMYCIN PHOSPHATE
     Indication: HYPERHIDROSIS
     Dosage: USE AS DIRECTED TWICE DAILY TO FEET
     Route: 061
     Dates: start: 201903
  2. TRETINOIN. [Concomitant]
     Active Substance: TRETINOIN
     Indication: ACNE
     Dosage: USE AS DIRECTED NIGHTLY ON FACE
     Route: 061
     Dates: start: 201807
  3. QBREXZA [Suspect]
     Active Substance: GLYCOPYRRONIUM TOSYLATE
     Indication: HYPERHIDROSIS
     Dosage: UNK, QD
     Route: 061
     Dates: start: 2019

REACTIONS (2)
  - Mydriasis [Not Recovered/Not Resolved]
  - Off label use [Unknown]

NARRATIVE: CASE EVENT DATE: 2019
